FAERS Safety Report 7525881-4 (Version None)
Quarter: 2011Q2

REPORT INFORMATION
  Report Type: 
  Country: None (occurrence: None)
  Receive Date: 20110606
  Receipt Date: 20110526
  Transmission Date: 20111010
  Serious: Yes (Hospitalization)
  Sender: FDA-Public Use
  Company Number: A0930148A

PATIENT
  Age: 58 Year
  Sex: Female

DRUGS (1)
  1. VOTRIENT [Suspect]
     Dosage: 600MG PER DAY
     Route: 048

REACTIONS (1)
  - ADVERSE EVENT [None]
